FAERS Safety Report 20258492 (Version 1)
Quarter: 2021Q4

REPORT INFORMATION
  Report Type: Spontaneous
  Country: US (occurrence: None)
  Receive Date: 20211229
  Receipt Date: 20211229
  Transmission Date: 20220303
  Serious: Yes (Hospitalization)
  Sender: FDA-Public Use
  Company Number: None

PATIENT
  Sex: Female

DRUGS (7)
  1. TOBI PODHALER [Suspect]
     Active Substance: TOBRAMYCIN
     Indication: Cystic fibrosis
     Dosage: PLACE 4 CAPSULES INTO INHALER AND INHALE INTO LUNGS TWICE DAILY FOR 28 DAYS ON AND 28 DAYS OFF
     Route: 055
     Dates: start: 20200317
  2. ALTERA [Concomitant]
  3. CALCIUM POW [Concomitant]
  4. CAYSTON [Concomitant]
     Active Substance: AZTREONAM
  5. MULTIVITAMIN CHW [Concomitant]
  6. PARI ALTERA NEBULIZER HAN [Concomitant]
  7. VITAMIN D CAP [Concomitant]

REACTIONS (2)
  - Hospitalisation [None]
  - Therapy interrupted [None]
